FAERS Safety Report 11252060 (Version 1)
Quarter: 2015Q3

REPORT INFORMATION
  Report Type: Spontaneous
  Country: US (occurrence: US)
  Receive Date: 20150708
  Receipt Date: 20150708
  Transmission Date: 20151125
  Serious: Yes (Other)
  Sender: FDA-Public Use
  Company Number: US-ELI_LILLY_AND_COMPANY-US201302003619

PATIENT
  Sex: Male

DRUGS (4)
  1. ALIMTA [Suspect]
     Active Substance: PEMETREXED DISODIUM
     Indication: LUNG ADENOCARCINOMA STAGE IV
     Dosage: 905 MG, 21 DAY CYCLE
     Route: 042
     Dates: start: 20120326, end: 20120517
  2. TAXOTERE [Concomitant]
     Active Substance: DOCETAXEL
  3. CARBOPLATIN. [Concomitant]
     Active Substance: CARBOPLATIN
  4. CISPLATIN. [Concomitant]
     Active Substance: CISPLATIN

REACTIONS (1)
  - Malignant neoplasm progression [Unknown]
